FAERS Safety Report 20696412 (Version 1)
Quarter: 2022Q2

REPORT INFORMATION
  Report Type: Spontaneous
  Country: US (occurrence: None)
  Receive Date: 20220409
  Receipt Date: 20220409
  Transmission Date: 20220721
  Serious: Yes (Disabling)
  Sender: FDA-Public Use
  Company Number: None

PATIENT
  Age: 83 Year
  Sex: Male
  Weight: 63.5 kg

DRUGS (1)
  1. PROHANCE [Suspect]
     Active Substance: GADOTERIDOL

REACTIONS (5)
  - Burning sensation [None]
  - Arthralgia [None]
  - Myalgia [None]
  - Impaired work ability [None]
  - Contrast media reaction [None]

NARRATIVE: CASE EVENT DATE: 20211014
